FAERS Safety Report 5747679-X (Version None)
Quarter: 2008Q2

REPORT INFORMATION
  Report Type: 
  Country: None (occurrence: None)
  Receive Date: 20080523
  Receipt Date: 20080519
  Transmission Date: 20081010
  Serious: Yes (Life-Threatening)
  Sender: FDA-Public Use
  Company Number: FR-ASTRAZENECA-2008CG00732

PATIENT
  Age: 16710 Day
  Sex: Female

DRUGS (10)
  1. XYLOCAINE [Suspect]
     Indication: LOCAL ANAESTHESIA
     Route: 058
     Dates: start: 20080305, end: 20080305
  2. NAROPEINE [Suspect]
     Indication: EPIDURAL ANAESTHESIA
     Route: 008
     Dates: start: 20080305, end: 20080305
  3. NAROPEINE [Suspect]
     Route: 008
     Dates: start: 20080305, end: 20080305
  4. NAROPEINE [Suspect]
     Route: 008
     Dates: start: 20080305
  5. NAROPEINE [Suspect]
     Route: 008
     Dates: start: 20080305
  6. CLAMOXYL [Suspect]
     Indication: VULVOVAGINITIS STREPTOCOCCAL
     Route: 042
     Dates: start: 20080303
  7. SUFENTA [Suspect]
     Indication: EPIDURAL ANAESTHESIA
     Route: 008
     Dates: start: 20080305, end: 20080305
  8. SUFENTA [Suspect]
     Route: 008
     Dates: start: 20080305, end: 20080305
  9. SUFENTA [Suspect]
     Route: 008
     Dates: start: 20080305
  10. SUFENTA [Suspect]
     Route: 008
     Dates: start: 20080305

REACTIONS (4)
  - BRONCHOSPASM [None]
  - OXYGEN SATURATION DECREASED [None]
  - RHINITIS [None]
  - URTICARIA [None]
